FAERS Safety Report 23218516 (Version 1)
Quarter: 2023Q4

REPORT INFORMATION
  Report Type: Report from Study
  Country: US (occurrence: US)
  Receive Date: 20231122
  Receipt Date: 20231122
  Transmission Date: 20240110
  Serious: Yes (Death)
  Sender: FDA-Public Use
  Company Number: US-JNJFOC-20231157158

PATIENT
  Age: 59 Year
  Sex: Male

DRUGS (1)
  1. CILTACABTAGENE AUTOLEUCEL [Suspect]
     Active Substance: CILTACABTAGENE AUTOLEUCEL
     Indication: Plasma cell myeloma
     Dosage: 57 X10^6 CAR POSITIVE T CELLS
     Route: 065
     Dates: start: 2023, end: 2023

REACTIONS (2)
  - Escherichia sepsis [Fatal]
  - Renal failure [Fatal]
